FAERS Safety Report 7931635-7 (Version None)
Quarter: 2011Q4

REPORT INFORMATION
  Report Type: 
  Country: None (occurrence: None)
  Receive Date: 20111121
  Receipt Date: 20111111
  Transmission Date: 20120403
  Serious: Yes (Other)
  Sender: FDA-Public Use
  Company Number: US-ASTRAZENECA-2010SE02927

PATIENT
  Age: 74 Year
  Sex: Female

DRUGS (7)
  1. METFORMIN HCL [Interacting]
  2. DIABETIC DRUG [Concomitant]
  3. NEXIUM [Interacting]
     Route: 048
  4. SULFADIMETHOXINE TAB [Interacting]
  5. CRESTOR [Interacting]
     Route: 048
  6. ATACAND [Suspect]
     Route: 048
  7. FUROSEMIDE [Concomitant]

REACTIONS (3)
  - HYPERTENSIVE NEPHROPATHY [None]
  - RENAL FAILURE [None]
  - POTENTIATING DRUG INTERACTION [None]
